FAERS Safety Report 8946071 (Version 3)
Quarter: 2012Q4

REPORT INFORMATION
  Report Type: Report from Study
  Country: JP (occurrence: JP)
  Receive Date: 20121205
  Receipt Date: 20121231
  Transmission Date: 20130627
  Serious: Yes (Hospitalization)
  Sender: FDA-Public Use
  Company Number: JP-JNJFOC-20121113515

PATIENT
  Age: 39 Year
  Sex: Male
  Weight: 61.2 kg

DRUGS (8)
  1. PALIPERIDONE PALMITATE [Suspect]
     Indication: SCHIZOPHRENIA
     Route: 030
     Dates: start: 20120912
  2. PALIPERIDONE PALMITATE [Suspect]
     Indication: SCHIZOPHRENIA
     Route: 030
     Dates: start: 20121012
  3. PALIPERIDONE PALMITATE [Suspect]
     Indication: SCHIZOPHRENIA
     Route: 030
     Dates: start: 20121102
  4. PALIPERIDONE PALMITATE [Suspect]
     Indication: SCHIZOPHRENIA
     Route: 030
     Dates: start: 20120905
  5. PALIPERIDONE PALMITATE [Suspect]
     Route: 030
  6. PALIPERIDONE PALMITATE [Suspect]
     Indication: SCHIZOPHRENIA
     Route: 030
  7. ZOPICLONE [Concomitant]
     Indication: SCHIZOPHRENIA
     Route: 048
  8. SODIUM VALPROATE [Concomitant]
     Indication: SCHIZOPHRENIA
     Route: 048
     Dates: start: 20121212

REACTIONS (1)
  - Psychiatric symptom [Recovered/Resolved]
